FAERS Safety Report 8097645-7 (Version None)
Quarter: 2012Q1

REPORT INFORMATION
  Report Type: 
  Country: None (occurrence: None)
  Receive Date: 20120128
  Receipt Date: 20110705
  Transmission Date: 20120608
  Serious: No
  Sender: FDA-Public Use
  Company Number: US-ABBOTT-11P-163-0836537-00

PATIENT
  Sex: Female
  Weight: 118.04 kg

DRUGS (7)
  1. LASIX [Concomitant]
     Indication: OEDEMA PERIPHERAL
     Route: 048
  2. HUMIRA [Suspect]
     Indication: PSORIASIS
     Route: 058
     Dates: start: 20110501
  3. METHOTREXATE [Concomitant]
     Indication: PSORIASIS
     Route: 048
  4. RISPERDAL [Concomitant]
     Indication: BIPOLAR DISORDER
     Route: 048
  5. SYNTHROID [Concomitant]
     Indication: HYPOTHYROIDISM
     Route: 048
  6. CITALOPRAM [Concomitant]
     Indication: DEPRESSION
     Route: 048
  7. ZYRTEC [Concomitant]
     Indication: ALLERGIC SINUSITIS
     Dosage: THREE TIMES A DAY 1 INJECTION
     Route: 048

REACTIONS (1)
  - HEADACHE [None]
